FAERS Safety Report 6819005-6 (Version None)
Quarter: 2010Q3

REPORT INFORMATION
  Report Type: 
  Country: None (occurrence: None)
  Receive Date: 20100707
  Receipt Date: 20100628
  Transmission Date: 20110219
  Serious: Yes (Other)
  Sender: FDA-Public Use
  Company Number: US-TYCO HEALTHCARE/MALLINCKRODT-T201001534

PATIENT
  Sex: Female

DRUGS (3)
  1. OPTIRAY 350 [Suspect]
     Indication: COMPUTERISED TOMOGRAM
     Dosage: 100 ML, SINGLE
     Route: 042
     Dates: start: 20100625, end: 20100625
  2. STEROID PREP [Concomitant]
     Indication: PREMEDICATION
     Dosage: 32 MG, 12 HOURS BEFORE EXAM
     Dates: start: 20100601, end: 20100601
  3. STEROID PREP [Concomitant]
     Dosage: 32 MG, 2 HOURS BEFORE EXAM
     Dates: start: 20100625, end: 20100625

REACTIONS (3)
  - CHEST DISCOMFORT [None]
  - COUGH [None]
  - DYSPNOEA [None]
